FAERS Safety Report 5887975-9 (Version None)
Quarter: 2008Q3

REPORT INFORMATION
  Report Type: 
  Country: None (occurrence: None)
  Receive Date: 20080918
  Receipt Date: 20080915
  Transmission Date: 20090109
  Serious: Yes (Hospitalization)
  Sender: FDA-Public Use
  Company Number: B0537443A

PATIENT
  Age: 40 Year
  Sex: Male

DRUGS (1)
  1. OMACOR [Suspect]
     Dosage: 1000MG PER DAY
     Route: 048
     Dates: start: 20050110, end: 20051018

REACTIONS (2)
  - FATIGUE [None]
  - RHABDOMYOLYSIS [None]
